FAERS Safety Report 20877716 (Version 1)
Quarter: 2022Q2

REPORT INFORMATION
  Report Type: Spontaneous
  Country: BR (occurrence: None)
  Receive Date: 20220526
  Receipt Date: 20220526
  Transmission Date: 20220721
  Serious: Yes (Hospitalization)
  Sender: FDA-Public Use
  Company Number: BR-ROCHE-3087272

PATIENT
  Sex: Female
  Weight: 57 kg

DRUGS (1)
  1. TECENTRIQ [Suspect]
     Active Substance: ATEZOLIZUMAB
     Indication: Lung neoplasm malignant
     Dosage: D1 / INTERVAL: 12 DAYS
     Route: 041
     Dates: start: 20201014, end: 20201019

REACTIONS (2)
  - Neutropenic colitis [Recovered/Resolved]
  - Febrile neutropenia [Recovered/Resolved]
